FAERS Safety Report 9003417 (Version 1)
Quarter: 2013Q1

REPORT INFORMATION
  Report Type: Spontaneous
  Country: US (occurrence: US)
  Receive Date: 20130108
  Receipt Date: 20130108
  Transmission Date: 20140127
  Serious: Yes (Death)
  Sender: FDA-Public Use
  Company Number: US-GLAXOSMITHKLINE-A1007380A

PATIENT
  Sex: Female

DRUGS (10)
  1. PROMACTA [Suspect]
     Indication: PRODUCT USED FOR UNKNOWN INDICATION
     Dosage: 25MG PER DAY
     Route: 048
  2. AFINITOR [Suspect]
     Indication: PRODUCT USED FOR UNKNOWN INDICATION
     Dosage: 10MG UNKNOWN
     Route: 065
  3. SYNTHROID [Concomitant]
  4. FOLIC ACID [Concomitant]
  5. FISH OIL [Concomitant]
  6. WOMENS MULTIVITAMIN [Concomitant]
  7. CALCIUM 500 [Concomitant]
  8. ASPIRIN LOW DOSE [Concomitant]
  9. ZYRTEC [Concomitant]
     Indication: HYPERSENSITIVITY
  10. SINGULAIR [Concomitant]

REACTIONS (1)
  - Death [Fatal]
